FAERS Safety Report 4605987-X (Version None)
Quarter: 2005Q1

REPORT INFORMATION
  Report Type: 
  Country: None (occurrence: None)
  Receive Date: 20050311
  Receipt Date: 20050301
  Transmission Date: 20050727
  Serious: Yes (Other)
  Sender: FDA-Public Use
  Company Number: DE-GLAXOSMITHKLINE-D0046027A

PATIENT
  Age: 23 Year
  Sex: Female

DRUGS (4)
  1. MALARONE [Suspect]
     Indication: PROPHYLAXIS
     Dosage: 1TAB PER DAY
     Route: 048
  2. URSO FALK [Concomitant]
     Route: 065
  3. DECORTIN H [Concomitant]
     Route: 065
  4. ZYTRIM [Concomitant]
     Route: 065

REACTIONS (1)
  - GAMMA-GLUTAMYLTRANSFERASE INCREASED [None]
